FAERS Safety Report 8962184 (Version 1)
Quarter: 2012Q4

REPORT INFORMATION
  Report Type: Report from Study
  Country: US (occurrence: US)
  Receive Date: 20121211
  Receipt Date: 20121211
  Transmission Date: 20130627
  Serious: Yes (Death, Life-Threatening, Hospitalization, Other)
  Sender: FDA-Public Use
  Company Number: US-009507513-1206USA01133

PATIENT
  Age: 64 Year
  Sex: Female
  Weight: 51.4 kg

DRUGS (3)
  1. SIMVASTATIN [Suspect]
     Dosage: 40 UNK, UNK
     Route: 048
     Dates: start: 20070615
  2. ASPIRIN [Concomitant]
     Dosage: UNK mg, qd
     Route: 048
     Dates: start: 20090101
  3. METOPROLOL [Concomitant]
     Dosage: UNK mg, qd
     Route: 048
     Dates: start: 20090601

REACTIONS (2)
  - Non-small cell lung cancer [Fatal]
  - Hydropneumothorax [Recovered/Resolved]
